FAERS Safety Report 7311481-8 (Version None)
Quarter: 2011Q1

REPORT INFORMATION
  Report Type: 
  Country: None (occurrence: None)
  Receive Date: 20110224
  Receipt Date: 20110214
  Transmission Date: 20110831
  Serious: Yes (Other)
  Sender: FDA-Public Use
  Company Number: PHHY2011US12597

PATIENT
  Age: 60 Year
  Sex: Male

DRUGS (1)
  1. FLUVASTATIN SODIUM [Suspect]
     Dosage: 80 MG PER DAY

REACTIONS (5)
  - POLYNEUROPATHY [None]
  - BALANCE DISORDER [None]
  - BLOOD CREATINE PHOSPHOKINASE INCREASED [None]
  - HYPOAESTHESIA [None]
  - NEUROPATHY PERIPHERAL [None]
